FAERS Safety Report 6282299-2 (Version None)
Quarter: 2009Q3

REPORT INFORMATION
  Report Type: 
  Country: None (occurrence: None)
  Receive Date: 20090722
  Receipt Date: 20090722
  Transmission Date: 20100115
  Serious: Yes (Other)
  Sender: FDA-Public Use
  Company Number: None

PATIENT
  Age: 58 Year
  Sex: Female
  Weight: 54.4316 kg

DRUGS (1)
  1. FORTEO [Suspect]
     Indication: OSTEOPOROSIS
     Dosage: ONE INJECTION PER DAY SQ
     Route: 058
     Dates: start: 20081001, end: 20090721

REACTIONS (2)
  - NECK PAIN [None]
  - NO THERAPEUTIC RESPONSE [None]
